FAERS Safety Report 6194909-9 (Version None)
Quarter: 2009Q2

REPORT INFORMATION
  Report Type: 
  Country: None (occurrence: None)
  Receive Date: 20090519
  Receipt Date: 20090513
  Transmission Date: 20091009
  Serious: Yes (Hospitalization)
  Sender: FDA-Public Use
  Company Number: ES-ASTRAZENECA-2009AC01398

PATIENT
  Age: 31 Year
  Sex: Male

DRUGS (6)
  1. FOSCAVIR [Suspect]
     Indication: CYTOMEGALOVIRUS INFECTION
     Route: 041
     Dates: start: 20090221, end: 20090302
  2. FOSCAVIR [Suspect]
     Route: 041
     Dates: start: 20090213, end: 20090220
  3. CALCIUM-SANDOZ [Concomitant]
     Dosage: FIX COMBINATION
     Route: 048
     Dates: start: 20090213, end: 20090302
  4. FLUCONAZOLE [Concomitant]
     Route: 048
  5. MAGNESIUM SULFATE [Concomitant]
     Route: 048
     Dates: start: 20090213, end: 20090302
  6. SEPTRIN FORTE [Concomitant]
     Dosage: FIX COMBINATION
     Route: 048

REACTIONS (3)
  - BALANITIS [None]
  - PENILE ULCERATION [None]
  - URETHRITIS [None]
